FAERS Safety Report 24798683 (Version 1)
Quarter: 2025Q1

REPORT INFORMATION
  Report Type: Spontaneous
  Country: US (occurrence: US)
  Receive Date: 20250102
  Receipt Date: 20250102
  Transmission Date: 20250409
  Serious: Yes (Other)
  Sender: ALKEM
  Company Number: None

PATIENT
  Age: 50 Year
  Sex: Male
  Weight: 75 kg

DRUGS (3)
  1. TACROLIMUS [Suspect]
     Active Substance: TACROLIMUS
     Indication: Product used for unknown indication
     Route: 065
  2. GLECAPREVIR\PIBRENTASVIR [Concomitant]
     Active Substance: GLECAPREVIR\PIBRENTASVIR
     Indication: Mesangioproliferative glomerulonephritis
     Route: 065
  3. GLECAPREVIR\PIBRENTASVIR [Concomitant]
     Active Substance: GLECAPREVIR\PIBRENTASVIR
     Indication: Hepatitis C

REACTIONS (4)
  - Renal tubular necrosis [Unknown]
  - Transplant rejection [Unknown]
  - Thrombotic microangiopathy [Unknown]
  - Toxicity to various agents [Unknown]
